FAERS Safety Report 25258595 (Version 2)
Quarter: 2025Q2

REPORT INFORMATION
  Report Type: Spontaneous
  Country: US (occurrence: US)
  Receive Date: 20250501
  Receipt Date: 20250506
  Transmission Date: 20250716
  Serious: Yes (Other)
  Sender: AMGEN
  Company Number: US-AMGEN-USASP2025085082

PATIENT
  Age: 62 Year
  Sex: Female

DRUGS (2)
  1. REPATHA [Suspect]
     Active Substance: EVOLOCUMAB
     Indication: Blood cholesterol increased
     Dosage: 140 MILLIGRAM, Q2WK
     Route: 065
     Dates: start: 202503
  2. TRICOR [Concomitant]
     Active Substance: FENOFIBRATE

REACTIONS (3)
  - Coronary artery occlusion [Unknown]
  - Device difficult to use [Unknown]
  - Eye disorder [Unknown]

NARRATIVE: CASE EVENT DATE: 20250101
